FAERS Safety Report 19290733 (Version 1)
Quarter: 2021Q2

REPORT INFORMATION
  Report Type: Other
  Country: US (occurrence: US)
  Receive Date: 20210521
  Receipt Date: 20210521
  Transmission Date: 20210717
  Serious: Yes (Other)
  Sender: FDA-Public Use
  Company Number: US-INTERCEPT-PM2021000981

PATIENT
  Age: 44 Year
  Sex: Female
  Weight: 131.07 kg

DRUGS (10)
  1. OCALIVA [Suspect]
     Active Substance: OBETICHOLIC ACID
     Indication: PRIMARY BILIARY CHOLANGITIS
     Dosage: 5 MILLIGRAM, QD
     Route: 048
     Dates: start: 20200106, end: 2020
  2. URSO FORTE [Concomitant]
     Active Substance: URSODIOL
     Dosage: 500 MILLIGRAM, QD
     Route: 048
  3. ATARAX [Concomitant]
     Active Substance: HYDROXYZINE HYDROCHLORIDE
     Dosage: 25 MILLIGRAM, PRN
     Route: 048
  4. MULTIVITAMINS WITH MINERALS [ASCORBIC ACID;CALCIUM PANTOTHENATE;CYANOC [Concomitant]
     Active Substance: MINERALS\VITAMINS
     Dosage: 1 DOSAGE FORM, QD
     Route: 048
  5. SINEQUAN [Concomitant]
     Active Substance: DOXEPIN HYDROCHLORIDE
     Indication: PRURITUS
     Dosage: 10 MILLIGRAM, BID
     Route: 048
  6. PRILOSEC [Concomitant]
     Active Substance: OMEPRAZOLE MAGNESIUM
     Dosage: 10 MILLIGRAM, BID
     Route: 048
  7. VALTREX [Concomitant]
     Active Substance: VALACYCLOVIR HYDROCHLORIDE
     Dosage: 500 MILLIGRAM, PRN
  8. OCALIVA [Suspect]
     Active Substance: OBETICHOLIC ACID
     Dosage: 10 MILLIGRAM, QD
     Route: 048
     Dates: start: 20200624, end: 20210204
  9. URSO FORTE [Concomitant]
     Active Substance: URSODIOL
     Indication: PRIMARY BILIARY CHOLANGITIS
     Dosage: 500 MILLIGRAM, TID
     Route: 048
     Dates: start: 20190110
  10. ALPRAZOLAM. [Concomitant]
     Active Substance: ALPRAZOLAM
     Dosage: 0.25 MILLIGRAM
     Dates: start: 20201006

REACTIONS (23)
  - Weight increased [Unknown]
  - Tearfulness [Unknown]
  - Night sweats [Unknown]
  - Dyslipidaemia [Unknown]
  - Constricted affect [Unknown]
  - Hepatic fibrosis [Unknown]
  - Abdominal distension [Unknown]
  - Decreased eye contact [Unknown]
  - Negative thoughts [Unknown]
  - Major depression [Unknown]
  - Cholestasis [Unknown]
  - Therapy interrupted [Not Recovered/Not Resolved]
  - Insurance issue [Not Recovered/Not Resolved]
  - Nonalcoholic fatty liver disease [Unknown]
  - Oedema [Unknown]
  - Blood alkaline phosphatase abnormal [Unknown]
  - Ear pruritus [Unknown]
  - Hepatic cirrhosis [Unknown]
  - Leukonychia [Unknown]
  - Blood bilirubin abnormal [Unknown]
  - Tinnitus [Unknown]
  - Insomnia [Unknown]
  - Lymphadenopathy [Unknown]

NARRATIVE: CASE EVENT DATE: 20201125
